FAERS Safety Report 14285123 (Version 1)
Quarter: 2017Q4

REPORT INFORMATION
  Report Type: Spontaneous
  Country: AU (occurrence: AU)
  Receive Date: 20171214
  Receipt Date: 20171214
  Transmission Date: 20180321
  Serious: Yes (Hospitalization, Other)
  Sender: FDA-Public Use
  Company Number: AU-009507513-1711AUS010754

PATIENT
  Age: 68 Year
  Sex: Male
  Weight: 118 kg

DRUGS (2)
  1. PEMBROLIZUMAB. [Suspect]
     Active Substance: PEMBROLIZUMAB
     Indication: METASTASES TO CENTRAL NERVOUS SYSTEM
  2. PEMBROLIZUMAB. [Suspect]
     Active Substance: PEMBROLIZUMAB
     Indication: METASTATIC MALIGNANT MELANOMA
     Dosage: 235 MG, EVERY 21 DAYS
     Dates: start: 20160615, end: 20160817

REACTIONS (6)
  - Vitiligo [Not Recovered/Not Resolved]
  - Dry skin [Unknown]
  - Encephalitis autoimmune [Recovering/Resolving]
  - Autoimmune nephritis [Recovered/Resolved]
  - Autoimmune hepatitis [Recovered/Resolved]
  - Pruritus [Unknown]

NARRATIVE: CASE EVENT DATE: 20160907
